FAERS Safety Report 22800782 (Version 2)
Quarter: 2024Q2

REPORT INFORMATION
  Report Type: Spontaneous
  Country: US (occurrence: US)
  Receive Date: 20230808
  Receipt Date: 20240405
  Transmission Date: 20240715
  Serious: Yes (Other)
  Sender: FDA-Public Use
  Company Number: US-ELI_LILLY_AND_COMPANY-US202308000943

PATIENT
  Age: 73 Year
  Sex: Female

DRUGS (2)
  1. RETEVMO [Suspect]
     Active Substance: SELPERCATINIB
     Indication: Medullary thyroid cancer
     Dosage: 80 MG, BID
     Route: 048
     Dates: start: 202106
  2. RETEVMO [Suspect]
     Active Substance: SELPERCATINIB
     Indication: Anaplastic thyroid cancer

REACTIONS (4)
  - Squamous cell carcinoma [Recovered/Resolved]
  - Hyperkeratosis [Unknown]
  - Fungal infection [Unknown]
  - Postoperative wound infection [Recovering/Resolving]

NARRATIVE: CASE EVENT DATE: 20230701
